FAERS Safety Report 10622988 (Version 1)
Quarter: 2014Q4

REPORT INFORMATION
  Report Type: Spontaneous
  Country: US (occurrence: US)
  Receive Date: 20141203
  Receipt Date: 20141203
  Transmission Date: 20150529
  Serious: No
  Sender: FDA-Public Use
  Company Number: US-009507513-1411USA010376

PATIENT
  Weight: 81.63 kg

DRUGS (1)
  1. ZETIA [Suspect]
     Active Substance: EZETIMIBE
     Indication: BLOOD CHOLESTEROL DECREASED
     Dosage: 10 MG, QD
     Route: 048
     Dates: start: 2010

REACTIONS (2)
  - Arthralgia [Unknown]
  - Myalgia [Unknown]
